FAERS Safety Report 9902976 (Version 2)
Quarter: 2014Q2

REPORT INFORMATION
  Report Type: Report from Study
  Country: US (occurrence: US)
  Receive Date: 20140217
  Receipt Date: 20140404
  Transmission Date: 20141212
  Serious: Yes (Death, Hospitalization, Disabling)
  Sender: FDA-Public Use
  Company Number: PHEH2014US003167

PATIENT
  Age: 69 Year
  Sex: Female
  Weight: 45 kg

DRUGS (7)
  1. TOBI [Suspect]
     Indication: CYSTIC FIBROSIS
     Dosage: 300 MG/5 ML AMPULE EVERY 12 HOURS
     Route: 055
     Dates: start: 201305, end: 20130904
  2. TOBI [Suspect]
     Indication: PSEUDOMONAS INFECTION
  3. PREDNISOLONE [Concomitant]
     Dosage: UNK UKN, UNK
  4. ALBUTEROL [Concomitant]
     Dosage: UNK UKN, UNK
  5. BROVANA [Concomitant]
     Dosage: UNK UKN, UNK
  6. PULMICORT [Concomitant]
     Dosage: UNK UKN, UNK
  7. SPIRIVA [Concomitant]
     Dosage: UNK UKN, UNK

REACTIONS (6)
  - Respiratory failure [Fatal]
  - Chronic obstructive pulmonary disease [Fatal]
  - Pseudomonas infection [Fatal]
  - Respiratory disorder [Recovered/Resolved]
  - Cough [Not Recovered/Not Resolved]
  - Dyspnoea [Not Recovered/Not Resolved]
